FAERS Safety Report 7507681-4 (Version None)
Quarter: 2011Q2

REPORT INFORMATION
  Report Type: 
  Country: None (occurrence: None)
  Receive Date: 20110527
  Receipt Date: 20110519
  Transmission Date: 20111010
  Serious: Yes (Hospitalization)
  Sender: FDA-Public Use
  Company Number: US-BIOGENIDEC-2011BI001997

PATIENT
  Age: 44 Year
  Sex: Female

DRUGS (2)
  1. AVONEX [Suspect]
     Indication: MULTIPLE SCLEROSIS
     Route: 030
     Dates: start: 20100202
  2. AVONEX [Suspect]
     Route: 030
     Dates: start: 20090202, end: 20090728

REACTIONS (6)
  - WEIGHT DECREASED [None]
  - MULTIPLE SCLEROSIS RELAPSE [None]
  - EMPHYSEMA [None]
  - COMA [None]
  - PNEUMONIA PNEUMOCOCCAL [None]
  - RENAL FAILURE [None]
